FAERS Safety Report 4388758-1 (Version None)
Quarter: 2004Q3

REPORT INFORMATION
  Report Type: 
  Country: None (occurrence: None)
  Receive Date: 20040701
  Receipt Date: 20040621
  Transmission Date: 20050211
  Serious: Yes (Hospitalization)
  Sender: FDA-Public Use
  Company Number: IT-GLAXOSMITHKLINE-B0336863A

PATIENT
  Age: 6 Year
  Sex: Female

DRUGS (2)
  1. AMOXICILLIN AND CLAVULANATE POTASSIUM [Suspect]
     Indication: BRONCHITIS
     Route: 048
     Dates: start: 20040202, end: 20040203
  2. VALPROATE SODIUM [Concomitant]
     Indication: EPILEPSY
     Dosage: 250MG PER DAY
     Route: 048

REACTIONS (4)
  - ANGIONEUROTIC OEDEMA [None]
  - COMPLEMENT FACTOR C1 DECREASED [None]
  - EYELID OEDEMA [None]
  - FACE OEDEMA [None]
